FAERS Safety Report 6010897-X (Version None)
Quarter: 2008Q4

REPORT INFORMATION
  Report Type: 
  Country: None (occurrence: None)
  Receive Date: 20081216
  Receipt Date: 20081204
  Transmission Date: 20090506
  Serious: Yes (Other)
  Sender: FDA-Public Use
  Company Number: US025084

PATIENT
  Age: 42 Year
  Sex: Female

DRUGS (7)
  1. PROVIGIL [Suspect]
     Indication: FATIGUE
     Dosage: ORAL
     Route: 048
     Dates: start: 20080101
  2. CLOZARIL [Suspect]
     Indication: BIPOLAR DISORDER
     Dosage: BID UNKNOWN
     Dates: start: 20020101
  3. REBIF [Suspect]
     Indication: MULTIPLE SCLEROSIS
     Dosage: 44 UG TRIWEEKLY SUBCUTANEOUS
     Route: 058
     Dates: start: 20080204, end: 20080820
  4. LISINOPRIL [Concomitant]
  5. ATENOLOL [Concomitant]
  6. CLONAZEPAM [Concomitant]
  7. XALATAN [Concomitant]

REACTIONS (5)
  - DELUSION [None]
  - DRUG INTERACTION [None]
  - INSOMNIA [None]
  - PARANOIA [None]
  - SUICIDAL BEHAVIOUR [None]
